FAERS Safety Report 8268344-3 (Version None)
Quarter: 2012Q2

REPORT INFORMATION
  Report Type: 
  Country: None (occurrence: None)
  Receive Date: 20120409
  Receipt Date: 20120402
  Transmission Date: 20120825
  Serious: Yes (Hospitalization, Other)
  Sender: FDA-Public Use
  Company Number: GB-TEVA-198089ISR

PATIENT
  Age: 36 Year
  Sex: Female

DRUGS (10)
  1. LANSOPRAZOLE [Suspect]
     Dosage: 30 MILLIGRAM;
     Route: 048
  2. TRIMETHOPRIM [Suspect]
     Indication: URINARY TRACT INFECTION
  3. FERROUS SULFATE TAB [Suspect]
     Dosage: 400 MILLIGRAM;
     Route: 048
  4. FOLIC ACID [Suspect]
     Dosage: 5 MILLIGRAM;
     Route: 048
  5. ZOPICLONE [Suspect]
     Dosage: 3.75 MILLIGRAM;
  6. CLOZAPINE [Suspect]
     Dates: start: 20050519
  7. DIAZEPAM [Suspect]
  8. PERINDOPRIL ERBUMINE [Suspect]
     Dosage: 2 MILLIGRAM;
     Route: 048
  9. CLOZAPINE [Suspect]
     Indication: SCHIZOPHRENIA
     Dosage: 250 MILLIGRAM;
     Route: 048
     Dates: start: 20060605, end: 20060713
  10. LACTULOSE [Suspect]

REACTIONS (19)
  - CARDIAC MURMUR [None]
  - HIATUS HERNIA [None]
  - STAPHYLOCOCCAL INFECTION [None]
  - DIABETES MELLITUS [None]
  - IRON DEFICIENCY ANAEMIA [None]
  - URINARY TRACT INFECTION [None]
  - PHYSICAL ASSAULT [None]
  - THROMBOCYTOSIS [None]
  - SKIN DISORDER [None]
  - CONSTIPATION [None]
  - MONOCYTE COUNT INCREASED [None]
  - SINUS TACHYCARDIA [None]
  - WHITE BLOOD CELL COUNT INCREASED [None]
  - MEAN CELL VOLUME DECREASED [None]
  - NEUTROPHIL COUNT INCREASED [None]
  - ABDOMINAL TENDERNESS [None]
  - BODY MASS INDEX DECREASED [None]
  - MALAISE [None]
  - PYREXIA [None]
